FAERS Safety Report 4801602-0 (Version None)
Quarter: 2005Q4

REPORT INFORMATION
  Report Type: 
  Country: None (occurrence: None)
  Receive Date: 20051018
  Receipt Date: 20050922
  Transmission Date: 20060501
  Serious: Yes (Death, Other)
  Sender: FDA-Public Use
  Company Number: PHEH2005US10580

PATIENT
  Age: 62 Year
  Sex: Male
  Weight: 49 kg

DRUGS (6)
  1. ZOMETA [Suspect]
     Dosage: 4MG BI MONTHLY OR LESS
     Route: 042
     Dates: start: 20050322, end: 20050726
  2. TAXOTERE [Suspect]
     Dosage: 90 MG BI MONTHLY
     Dates: start: 20050301, end: 20050706
  3. POTASSIUM [Suspect]
     Dosage: 20 MG, QD
  4. PREDNISONE [Concomitant]
     Dosage: 5 MG, UNK
  5. METHADONE [Concomitant]
     Dosage: 5 MG, QD
     Route: 048
  6. PROZAC [Concomitant]
     Dosage: 20 MG, QD

REACTIONS (3)
  - MALIGNANT NEOPLASM PROGRESSION [None]
  - OSTEONECROSIS [None]
  - PROSTATE CANCER [None]
